FAERS Safety Report 7701720-3 (Version None)
Quarter: 2011Q3

REPORT INFORMATION
  Report Type: 
  Country: None (occurrence: None)
  Receive Date: 20110822
  Receipt Date: 20110815
  Transmission Date: 20111222
  Serious: Yes (Hospitalization, Other)
  Sender: FDA-Public Use
  Company Number: US-BAYER-2011-051778

PATIENT
  Age: 41 Year
  Sex: Female

DRUGS (2)
  1. MIRENA [Suspect]
     Indication: MENORRHAGIA
     Dosage: 20 MCG/24HR, CONT
     Route: 015
     Dates: start: 20110426, end: 20110525
  2. MIRENA [Suspect]
     Indication: CONTRACEPTION

REACTIONS (4)
  - ABDOMINAL PAIN LOWER [None]
  - PAIN [None]
  - DISCOMFORT [None]
  - UTERINE HAEMORRHAGE [None]
